FAERS Safety Report 13060376 (Version 7)
Quarter: 2017Q2

REPORT INFORMATION
  Report Type: Report from Study
  Country: JP (occurrence: JP)
  Receive Date: 20161224
  Receipt Date: 20170407
  Transmission Date: 20170830
  Serious: Yes (Death, Other)
  Sender: FDA-Public Use
  Company Number: JP-UCBSA-2016048985

PATIENT
  Sex: Female
  Weight: 25 kg

DRUGS (3)
  1. LEVETIRACETAM. [Suspect]
     Active Substance: LEVETIRACETAM
     Indication: FOCAL DYSCOGNITIVE SEIZURES
     Dosage: 1250 MG, ONCE DAILY (QD)
     Route: 041
     Dates: start: 20160306, end: 20160306
  2. E KEPPRA [Suspect]
     Active Substance: LEVETIRACETAM
     Indication: FOCAL DYSCOGNITIVE SEIZURES
     Dosage: 625 MG, 2X/DAY (BID)
     Route: 048
     Dates: start: 20130831, end: 20160302
  3. PHENOBAL [Concomitant]
     Active Substance: PHENOBARBITAL
     Indication: FOCAL DYSCOGNITIVE SEIZURES
     Dosage: UNK
     Dates: end: 20160302

REACTIONS (4)
  - Ileus [Unknown]
  - Death [Fatal]
  - Renal impairment [Not Recovered/Not Resolved]
  - Malabsorption [Not Recovered/Not Resolved]

NARRATIVE: CASE EVENT DATE: 2016
